FAERS Safety Report 11623272 (Version 1)
Quarter: 2015Q4

REPORT INFORMATION
  Report Type: Spontaneous
  Country: US (occurrence: None)
  Receive Date: 20151009
  Receipt Date: 20151009
  Transmission Date: 20160304
  Serious: No
  Sender: FDA-Public Use
  Company Number: None

PATIENT
  Age: 70 Year
  Sex: Female

DRUGS (1)
  1. HUMIRA [Suspect]
     Active Substance: ADALIMUMAB
     Indication: PRODUCT USED FOR UNKNOWN INDICATION
     Dosage: 40MG?EVERY OTHER SEEK ?SQ
     Dates: start: 20150530, end: 20150531

REACTIONS (2)
  - Injection site rash [None]
  - Rash [None]

NARRATIVE: CASE EVENT DATE: 20150530
